FAERS Safety Report 16198695 (Version 3)
Quarter: 2019Q4

REPORT INFORMATION
  Report Type: Report from Study
  Country: US (occurrence: US)
  Receive Date: 20190415
  Receipt Date: 20191029
  Transmission Date: 20200122
  Serious: Yes (Hospitalization, Other)
  Sender: FDA-Public Use
  Company Number: US-JNJFOC-20190418080

PATIENT
  Age: 70 Year
  Sex: Female

DRUGS (26)
  1. IMBRUVICA [Suspect]
     Active Substance: IBRUTINIB
     Indication: CHRONIC LYMPHOCYTIC LEUKAEMIA
     Route: 048
     Dates: start: 20160130, end: 20180628
  2. VITAMIN B12 [Concomitant]
     Active Substance: CYANOCOBALAMIN
  3. TRAMADOL HCL [Concomitant]
     Active Substance: TRAMADOL HYDROCHLORIDE
  4. SYMBICORT [Concomitant]
     Active Substance: BUDESONIDE\FORMOTEROL FUMARATE DIHYDRATE
  5. TIZANIDINE. [Concomitant]
     Active Substance: TIZANIDINE
  6. ROBAXIN [Concomitant]
     Active Substance: METHOCARBAMOL
  7. LEVOXYL [Concomitant]
     Active Substance: LEVOTHYROXINE SODIUM
  8. NEXIUM [Concomitant]
     Active Substance: ESOMEPRAZOLE MAGNESIUM
  9. ESTRACE [Concomitant]
     Active Substance: ESTRADIOL
  10. ZYRTEC [Concomitant]
     Active Substance: CETIRIZINE HYDROCHLORIDE
  11. HYDROMORPHONE [Concomitant]
     Active Substance: HYDROMORPHONE
  12. XOPENEX [Concomitant]
     Active Substance: LEVALBUTEROL HYDROCHLORIDE
  13. SPIRONOLACTONE. [Concomitant]
     Active Substance: SPIRONOLACTONE
  14. RANEXA [Concomitant]
     Active Substance: RANOLAZINE
  15. ZOFRAN [Concomitant]
     Active Substance: ONDANSETRON HYDROCHLORIDE
  16. LIDODERM [Concomitant]
     Active Substance: LIDOCAINE
  17. NITROGLYCERIN. [Concomitant]
     Active Substance: NITROGLYCERIN
  18. LINZESS [Concomitant]
     Active Substance: LINACLOTIDE
  19. GABAPENTINE [Concomitant]
     Active Substance: GABAPENTIN
  20. IMBRUVICA [Concomitant]
     Active Substance: IBRUTINIB
     Indication: CHRONIC LYMPHOCYTIC LEUKAEMIA
     Route: 048
     Dates: start: 20180629
  21. IMBRUVICA [Suspect]
     Active Substance: IBRUTINIB
     Route: 048
     Dates: start: 20190108
  22. NASONEX [Concomitant]
     Active Substance: MOMETASONE FUROATE
  23. SOTALOL. [Concomitant]
     Active Substance: SOTALOL
  24. HYDROXYZINE HCL [Concomitant]
     Active Substance: HYDROXYZINE HYDROCHLORIDE
  25. PREVNAR 13 [Suspect]
     Active Substance: PNEUMOCOCCAL 13-VALENT CONJUGATE VACCINE
     Indication: PRODUCT USED FOR UNKNOWN INDICATION
     Route: 065
  26. LASIX [Concomitant]
     Active Substance: FUROSEMIDE

REACTIONS (4)
  - Anaphylactic reaction [Unknown]
  - Sepsis [Unknown]
  - Transfusion [Unknown]
  - Staphylococcal infection [Unknown]

NARRATIVE: CASE EVENT DATE: 201902
